FAERS Safety Report 5476913-9 (Version None)
Quarter: 2007Q4

REPORT INFORMATION
  Report Type: 
  Country: None (occurrence: None)
  Receive Date: 20071004
  Receipt Date: 20070928
  Transmission Date: 20080405
  Serious: Yes (Hospitalization)
  Sender: FDA-Public Use
  Company Number: NL-PURDUE-DEU_2007_0003278

PATIENT
  Age: 52 Year
  Sex: Male
  Weight: 106 kg

DRUGS (10)
  1. OXY/NALOX CR TABS VS OXY CR TABS [Suspect]
     Indication: PAIN
     Dosage: 80 MG, DAILY
     Route: 048
     Dates: start: 20070327
  2. BISACODYL [Concomitant]
  3. LISINOPRIL [Concomitant]
  4. LYRICA [Concomitant]
  5. DEPAKENE [Concomitant]
  6. RIVOTRIL [Concomitant]
  7. LIPITOR [Concomitant]
  8. NIFEDIPINE [Concomitant]
  9. INSULIN HUMAN [Concomitant]
  10. OXYCODONE HCL [Suspect]
     Indication: PAIN
     Route: 048
     Dates: start: 20070311

REACTIONS (1)
  - ANGINA PECTORIS [None]
